FAERS Safety Report 5141870-1 (Version None)
Quarter: 2006Q4

REPORT INFORMATION
  Report Type: 
  Country: None (occurrence: None)
  Receive Date: 20061027
  Receipt Date: 20061016
  Transmission Date: 20070319
  Serious: No
  Sender: FDA-Public Use
  Company Number: 2006-149133-NL

PATIENT
  Age: 43 Year
  Sex: Male

DRUGS (5)
  1. MIRTAZAPINE [Suspect]
     Dosage: DF
     Dates: start: 20040101
  2. CITALOPRAM HYDROBROMIDE [Suspect]
     Indication: DEPRESSION
     Dosage: DF, ORAL
     Route: 048
     Dates: start: 20031229
  3. VENLAFAXINE [Suspect]
     Dosage: DF
  4. ATENOLOL [Concomitant]
  5. RABEPRAZOLE SODIUM [Concomitant]

REACTIONS (30)
  - ABNORMAL DREAMS [None]
  - AFFECT LABILITY [None]
  - AGEUSIA [None]
  - AGITATION [None]
  - ANHIDROSIS [None]
  - ANOREXIA [None]
  - ANOSMIA [None]
  - APPETITE DISORDER [None]
  - BACK PAIN [None]
  - CONFUSIONAL STATE [None]
  - DIARRHOEA [None]
  - DIZZINESS [None]
  - EMOTIONAL DISORDER [None]
  - FEELING ABNORMAL [None]
  - FEELING OF BODY TEMPERATURE CHANGE [None]
  - HALLUCINATION [None]
  - HEADACHE [None]
  - HEARING IMPAIRED [None]
  - HYPOAESTHESIA [None]
  - INFLUENZA LIKE ILLNESS [None]
  - INSOMNIA [None]
  - MALAISE [None]
  - MUSCLE SPASMS [None]
  - PAIN [None]
  - PARAESTHESIA [None]
  - PERSONALITY CHANGE [None]
  - SEROTONIN SYNDROME [None]
  - SOMNOLENCE [None]
  - THIRST DECREASED [None]
  - VISUAL ACUITY REDUCED [None]
